FAERS Safety Report 11485825 (Version 1)
Quarter: 2015Q3

REPORT INFORMATION
  Report Type: Report from Study
  Country: FR (occurrence: FR)
  Receive Date: 20150909
  Receipt Date: 20150909
  Transmission Date: 20151125
  Serious: No
  Sender: FDA-Public Use
  Company Number: FR-JAZZ-2015-FR-000496

PATIENT
  Sex: Male
  Weight: 94 kg

DRUGS (4)
  1. XYREM [Suspect]
     Active Substance: SODIUM OXYBATE
     Indication: CATAPLEXY
     Dosage: RESTARTED DOSE
     Route: 048
  2. XYREM [Suspect]
     Active Substance: SODIUM OXYBATE
     Indication: NARCOLEPSY
     Dosage: 2.25 G, BID
     Route: 048
     Dates: start: 20141106, end: 2014
  3. RITALINE [Concomitant]
     Active Substance: METHYLPHENIDATE HYDROCHLORIDE
  4. MODIODAL [Concomitant]
     Active Substance: MODAFINIL

REACTIONS (4)
  - Middle insomnia [Unknown]
  - Fatigue [Unknown]
  - Vomiting [Unknown]
  - Vision blurred [Unknown]

NARRATIVE: CASE EVENT DATE: 2014
